FAERS Safety Report 6956360-0 (Version None)
Quarter: 2010Q3

REPORT INFORMATION
  Report Type: 
  Country: None (occurrence: None)
  Receive Date: 20100830
  Receipt Date: 20100823
  Transmission Date: 20110219
  Serious: No
  Sender: FDA-Public Use
  Company Number: A0871697A

PATIENT
  Age: 69 Year
  Sex: Male

DRUGS (3)
  1. PARNATE [Suspect]
     Indication: DEPRESSION
  2. SEROQUEL [Concomitant]
  3. LORAZEPAM [Concomitant]

REACTIONS (1)
  - JOINT SWELLING [None]
